FAERS Safety Report 20583965 (Version 1)
Quarter: 2022Q1

REPORT INFORMATION
  Report Type: Spontaneous
  Country: US (occurrence: US)
  Receive Date: 20220311
  Receipt Date: 20220311
  Transmission Date: 20220423
  Serious: No
  Sender: FDA-Public Use
  Company Number: US-SA-SAC20220309001294

PATIENT
  Sex: Male

DRUGS (2)
  1. ALPROLIX [Suspect]
     Active Substance: EFTRENONACOG ALFA
     Indication: Factor IX deficiency
     Dosage: 8700 U (8265-9135) AS NEEDED FOR BLEEDING, QOW
     Route: 042
     Dates: start: 202111
  2. ALPROLIX [Suspect]
     Active Substance: EFTRENONACOG ALFA
     Indication: Factor IX deficiency
     Dosage: 8700 U (8265-9135) AS NEEDED FOR BLEEDING, QOW
     Route: 042
     Dates: start: 202111

REACTIONS (1)
  - Traumatic haemorrhage [Not Recovered/Not Resolved]
